FAERS Safety Report 23056173 (Version 3)
Quarter: 2023Q4

REPORT INFORMATION
  Report Type: Report from Study
  Country: CA (occurrence: CA)
  Receive Date: 20231011
  Receipt Date: 20231109
  Transmission Date: 20240109
  Serious: Yes (Hospitalization, Other)
  Sender: FDA-Public Use
  Company Number: CA-HLS-202302288

PATIENT
  Age: 69 Year
  Sex: Female

DRUGS (13)
  1. CLOZARIL [Suspect]
     Active Substance: CLOZAPINE
     Indication: Product used for unknown indication
     Route: 048
     Dates: start: 20140604, end: 202305
  2. CLOZARIL [Suspect]
     Active Substance: CLOZAPINE
     Indication: Product used for unknown indication
     Dosage: 12.5 MG BY MOUTH TWICE DAILY STARTED ON JUL-2023,?25 MG SACHETS BY MOUTH TWICE DAILY ON 27-JUL-2023
     Route: 048
  3. SERTRALINE HYDROCHLORIDE [Concomitant]
     Active Substance: SERTRALINE HYDROCHLORIDE
     Indication: Product used for unknown indication
     Dosage: DAILY SACHET BY MOUTH (DAILY YYC SCH)
     Route: 048
     Dates: start: 20230622
  4. SENNOSIDES [Concomitant]
     Active Substance: SENNOSIDES
     Indication: Product used for unknown indication
     Dosage: 2TAB TWICE DAILY BY MOUTH(BID SCH)
     Route: 048
     Dates: start: 20230201
  5. QUETIAPINE FUMARATE [Concomitant]
     Active Substance: QUETIAPINE FUMARATE
     Indication: Product used for unknown indication
     Dosage: EVERY 4 HOUR AS NEEDED (Q4H PRN)
     Route: 048
     Dates: start: 20230712
  6. POLYETHYLENE GLYCOL [Concomitant]
     Active Substance: POLYETHYLENE GLYCOL
     Indication: Product used for unknown indication
     Dosage: SACHETS TWICE DAILY BY MOUTH (BID SCH)
     Route: 048
     Dates: start: 20230201
  7. Ondansetron HC [Concomitant]
     Indication: Product used for unknown indication
     Dosage: EVERY 8 HOUR AS NEEDED BY INTRAMUSCULAR (Q8HR PRN)
     Route: 030
     Dates: start: 20230201
  8. Ondansetron HC [Concomitant]
     Indication: Product used for unknown indication
     Dosage: EVERY 8 HOUR AS NEEDED BY MOUTH (Q8HR PRN)
     Route: 048
     Dates: start: 20230201
  9. MAGNESIUM OXIDE [Concomitant]
     Active Substance: MAGNESIUM OXIDE
     Indication: Product used for unknown indication
     Dosage: SACHET DAILY BY MOUTH (DAILY SCH)
     Route: 048
     Dates: start: 20230202
  10. LACTULOSE [Concomitant]
     Active Substance: LACTULOSE
     Indication: Product used for unknown indication
     Dosage: SACHET TWICE DAILY (BID SCH)
     Route: 048
     Dates: start: 20230201
  11. ATORVASTATIN CALCIUM [Concomitant]
     Active Substance: ATORVASTATIN CALCIUM
     Indication: Product used for unknown indication
     Dosage: SACHET AT BED TIME BY MOUTH
     Route: 048
     Dates: start: 20230201
  12. ACETAMINOPHEN [Concomitant]
     Active Substance: ACETAMINOPHEN
     Indication: Product used for unknown indication
     Dosage: EVERY 4 HOUR 500-1000MG BY MOUTH AS NEEDED.(Q4HR PRN)
     Route: 048
     Dates: start: 20230201
  13. BISACODYL [Concomitant]
     Active Substance: BISACODYL
     Indication: Product used for unknown indication
     Dosage: ONCE AS NEEDED BY RECTAL (PR ONCE PRN)
     Route: 054
     Dates: start: 20230201

REACTIONS (13)
  - Hydronephrosis [Unknown]
  - Constipation [Unknown]
  - Diabetes mellitus [Unknown]
  - Dyslipidaemia [Unknown]
  - Haematocrit decreased [Recovered/Resolved]
  - Haemoglobin decreased [Not Recovered/Not Resolved]
  - Mean cell haemoglobin concentration decreased [Recovered/Resolved]
  - Osteoporosis [Unknown]
  - Red blood cell count decreased [Not Recovered/Not Resolved]
  - Red cell distribution width increased [Not Recovered/Not Resolved]
  - Nephrolithiasis [Unknown]
  - Abnormal behaviour [Unknown]
  - Therapy interrupted [Recovered/Resolved]

NARRATIVE: CASE EVENT DATE: 20230214
